APPROVED DRUG PRODUCT: CERUBIDINE
Active Ingredient: DAUNORUBICIN HYDROCHLORIDE
Strength: EQ 20MG BASE/VIAL
Dosage Form/Route: INJECTABLE;INJECTION
Application: A061876 | Product #001
Applicant: SANOFI AVENTIS US LLC
Approved: Approved Prior to Jan 1, 1982 | RLD: No | RS: No | Type: DISCN